FAERS Safety Report 6600128-1 (Version None)
Quarter: 2010Q1

REPORT INFORMATION
  Report Type: 
  Country: None (occurrence: None)
  Receive Date: 20100224
  Receipt Date: 20100209
  Transmission Date: 20100710
  Serious: Yes (Other)
  Sender: FDA-Public Use
  Company Number: JP-EISAI INC.-E2020-05972-SPO-JP

PATIENT
  Age: 91 Year
  Sex: Male

DRUGS (2)
  1. ARICEPT [Suspect]
     Indication: DEMENTIA ALZHEIMER'S TYPE
     Route: 048
  2. RISPERDAL [Concomitant]
     Route: 048

REACTIONS (3)
  - AGGRESSION [None]
  - AGITATION [None]
  - HOMICIDAL IDEATION [None]
